FAERS Safety Report 9689377 (Version 5)
Quarter: 2015Q2

REPORT INFORMATION
  Report Type: Spontaneous
  Country: US (occurrence: US)
  Receive Date: 20131114
  Receipt Date: 20150520
  Transmission Date: 20150821
  Serious: Yes (Hospitalization, Disabling, Other)
  Sender: FDA-Public Use
  Company Number: US-009507513-1205USA04972

PATIENT
  Sex: Female

DRUGS (5)
  1. OMEGA-3 MARINE TRIGLYCERIDES [Concomitant]
     Active Substance: FISH OIL
     Dosage: UNK UNK, QD
     Route: 048
     Dates: start: 2000, end: 2012
  2. CORTICOSTEROIDS (UNSPECIFIED) [Concomitant]
     Active Substance: UNSPECIFIED INGREDIENT
     Dosage: UNK
     Dates: start: 20000417, end: 2013
  3. FOSAMAX [Suspect]
     Active Substance: ALENDRONATE SODIUM
     Indication: RHEUMATOID ARTHRITIS
     Dosage: 70 MG, UNK
     Route: 048
     Dates: start: 200101, end: 200806
  4. FOSAMAX PLUS D [Suspect]
     Active Substance: ALENDRONATE SODIUM\CHOLECALCIFEROL
     Indication: OSTEOPOROSIS
     Route: 048
  5. FOSAMAX [Suspect]
     Active Substance: ALENDRONATE SODIUM
     Indication: OSTEOPOROSIS
     Route: 048

REACTIONS (69)
  - Skin cancer [Unknown]
  - Intramedullary rod insertion [Unknown]
  - Vocal cord paralysis [Unknown]
  - Oedema peripheral [Unknown]
  - Obliterative bronchiolitis [Unknown]
  - Limb operation [Unknown]
  - Intervertebral disc operation [Unknown]
  - Pulmonary embolism [Unknown]
  - Heart rate irregular [Unknown]
  - Pallor [Unknown]
  - Device malfunction [Unknown]
  - Arthralgia [Unknown]
  - Hip surgery [Unknown]
  - Spinal fusion surgery [Unknown]
  - Pneumonia [Unknown]
  - Sepsis [Unknown]
  - Anaemia [Unknown]
  - Multiple fractures [Not Recovered/Not Resolved]
  - Hypothyroidism [Unknown]
  - Osteoarthritis [Unknown]
  - Muscle haemorrhage [Unknown]
  - Sleep apnoea syndrome [Unknown]
  - Cyst removal [Unknown]
  - Tendon operation [Unknown]
  - Pneumonia [Unknown]
  - Osteoporosis [Not Recovered/Not Resolved]
  - Open reduction of fracture [Unknown]
  - Nail infection [Unknown]
  - Chronic obstructive pulmonary disease [Not Recovered/Not Resolved]
  - Deep vein thrombosis [Unknown]
  - Left atrial dilatation [Unknown]
  - Cardiac failure congestive [Unknown]
  - Pulmonary embolism [Unknown]
  - Bone density decreased [Not Recovered/Not Resolved]
  - Anxiety [Recovered/Resolved]
  - Foot fracture [Unknown]
  - Cardiac murmur [Unknown]
  - Peritoneal haematoma [Unknown]
  - Asthenia [Unknown]
  - Cataract operation [Unknown]
  - Intervertebral disc degeneration [Unknown]
  - Peripheral venous disease [Not Recovered/Not Resolved]
  - Dysphagia [Unknown]
  - Knee arthroplasty [Unknown]
  - Hip fracture [Unknown]
  - Deep vein thrombosis [Unknown]
  - Depression [Recovered/Resolved]
  - Periodontal operation [Unknown]
  - Hypertension [Unknown]
  - Osteopenia [Unknown]
  - Skin ulcer [Unknown]
  - Off label use [Unknown]
  - Femur fracture [Not Recovered/Not Resolved]
  - Adverse drug reaction [Unknown]
  - Tuberculosis [Unknown]
  - Respiratory failure [Unknown]
  - Respiratory failure [Unknown]
  - Cataract [Unknown]
  - Vena cava filter insertion [Unknown]
  - Haemorrhagic disorder [Unknown]
  - Gait disturbance [Unknown]
  - Depression [Unknown]
  - Atrial fibrillation [Unknown]
  - Knee arthroplasty [Unknown]
  - Spinal laminectomy [Unknown]
  - Chronic obstructive pulmonary disease [Unknown]
  - Myocardial infarction [Unknown]
  - Cerebral infarction [Unknown]
  - Left ventricular hypertrophy [Unknown]

NARRATIVE: CASE EVENT DATE: 2001
